FAERS Safety Report 18403164 (Version 2)
Quarter: 2020Q4

REPORT INFORMATION
  Report Type: Spontaneous
  Country: BR (occurrence: BR)
  Receive Date: 20201019
  Receipt Date: 20201106
  Transmission Date: 20210114
  Serious: Yes (Other)
  Sender: FDA-Public Use
  Company Number: BR-ROCHE-2698352

PATIENT
  Age: 34 Year
  Sex: Female

DRUGS (2)
  1. SYMBICORT [Concomitant]
     Active Substance: BUDESONIDE\FORMOTEROL FUMARATE DIHYDRATE
     Indication: PRODUCT USED FOR UNKNOWN INDICATION
     Dosage: UNK, TID
     Route: 065
  2. XOLAIR [Suspect]
     Active Substance: OMALIZUMAB
     Indication: ASTHMA
     Dosage: UNK
     Route: 065
     Dates: start: 202006

REACTIONS (7)
  - Dyspnoea [Unknown]
  - Asthma [Unknown]
  - Drug ineffective [Unknown]
  - Cough [Unknown]
  - Malaise [Not Recovered/Not Resolved]
  - Wheezing [Unknown]
  - Allergic sinusitis [Unknown]
